FAERS Safety Report 16018027 (Version 1)
Quarter: 2019Q1

REPORT INFORMATION
  Report Type: Spontaneous
  Country: US (occurrence: US)
  Receive Date: 20190201
  Receipt Date: 20190201
  Transmission Date: 20190418
  Serious: Yes (Other)
  Sender: FDA-Public Use
  Company Number: None

PATIENT
  Age: 63 Year
  Sex: Female

DRUGS (10)
  1. ROSUVASTATIN. [Concomitant]
     Active Substance: ROSUVASTATIN
  2. LEXISCAN [Suspect]
     Active Substance: REGADENOSON
     Indication: CARDIAC STRESS TEST
     Dates: start: 20190114, end: 20190114
  3. GLYBURIDE. [Concomitant]
     Active Substance: GLYBURIDE
  4. VITAMIN D [Concomitant]
     Active Substance: CHOLECALCIFEROL
  5. BABY ASPIRIN [Concomitant]
     Active Substance: ASPIRIN
  6. GENERIC SINGULAIR [Concomitant]
     Active Substance: MONTELUKAST SODIUM
  7. BIOTIN [Concomitant]
     Active Substance: BIOTIN
  8. LORAZEPAM. [Concomitant]
     Active Substance: LORAZEPAM
  9. GLYBURIDE/METFORMIN [Concomitant]
     Active Substance: GLYBURIDE\METFORMIN
  10. ATENOLOL. [Concomitant]
     Active Substance: ATENOLOL

REACTIONS (7)
  - Headache [None]
  - Blood urine present [None]
  - Pelvic pain [None]
  - Erythema [None]
  - Urinary tract infection [None]
  - Abdominal pain [None]
  - Insomnia [None]

NARRATIVE: CASE EVENT DATE: 20190114
